FAERS Safety Report 24616288 (Version 1)
Quarter: 2024Q4

REPORT INFORMATION
  Report Type: Spontaneous
  Country: PH (occurrence: PH)
  Receive Date: 20241114
  Receipt Date: 20241114
  Transmission Date: 20250115
  Serious: Yes (Death, Other)
  Sender: BOEHRINGER INGELHEIM
  Company Number: PH-BoehringerIngelheim-2024-BI-062521

PATIENT
  Age: 77 Year
  Sex: Female

DRUGS (1)
  1. OFEV [Suspect]
     Active Substance: NINTEDANIB
     Indication: Interstitial lung disease
     Route: 048
     Dates: start: 20130614, end: 202308

REACTIONS (4)
  - Septic shock [Fatal]
  - Tuberculosis [Unknown]
  - Metastatic neoplasm [Unknown]
  - Cholelithiasis [Unknown]
